FAERS Safety Report 9580776 (Version 2)
Quarter: 2013Q4

REPORT INFORMATION
  Report Type: Report from Study
  Country: DE (occurrence: DE)
  Receive Date: 20131002
  Receipt Date: 20131016
  Transmission Date: 20140711
  Serious: Yes (Other)
  Sender: FDA-Public Use
  Company Number: DE-ROCHE-1283091

PATIENT
  Sex: Male

DRUGS (4)
  1. RANIBIZUMAB [Suspect]
     Indication: VISUAL IMPAIRMENT
     Route: 050
     Dates: start: 20130318
  2. RANIBIZUMAB [Suspect]
     Indication: MACULAR OEDEMA
     Route: 050
     Dates: start: 20130415
  3. RANIBIZUMAB [Suspect]
     Indication: RETINAL VEIN OCCLUSION
     Route: 050
     Dates: start: 20130916
  4. TRUSOPT [Concomitant]
     Route: 061
     Dates: start: 20130308

REACTIONS (3)
  - Retinal vein occlusion [Unknown]
  - Disease recurrence [Unknown]
  - Drug ineffective [Unknown]
